FAERS Safety Report 18855690 (Version 1)
Quarter: 2021Q1

REPORT INFORMATION
  Report Type: Spontaneous
  Country: US (occurrence: US)
  Receive Date: 20210205
  Receipt Date: 20210205
  Transmission Date: 20210420
  Serious: Yes (Other)
  Sender: FDA-Public Use
  Company Number: US-APOTEX-2021AP002189

PATIENT
  Age: 68 Year
  Sex: Female

DRUGS (29)
  1. ALENDRONATE SODIUM. [Concomitant]
     Active Substance: ALENDRONATE SODIUM
     Indication: OSTEOPOROSIS
     Dosage: 1 DOSAGE FORM, Q.WK.
     Route: 048
  2. FAMOTIDINE. [Concomitant]
     Active Substance: FAMOTIDINE
     Indication: GASTROOESOPHAGEAL REFLUX DISEASE
     Dosage: 1 DOSAGE FORM, BID
     Route: 048
  3. LANSOPRAZOLE. [Concomitant]
     Active Substance: LANSOPRAZOLE
     Indication: GASTROOESOPHAGEAL REFLUX DISEASE
     Dosage: 1 DOSAGE FORM, Q.AM, BEFORE BREAKFAST
     Route: 048
  4. MYCOPHENOLATE MOFETIL. [Concomitant]
     Active Substance: MYCOPHENOLATE MOFETIL
     Indication: IMMUNOSUPPRESSION
     Dosage: 1 DOSAGE FORM, BID
     Route: 048
  5. VALACYCLOVIR [Concomitant]
     Active Substance: VALACYCLOVIR HYDROCHLORIDE
     Indication: HERPES SIMPLEX
     Dosage: 1 DOSAGE FORM, BID
     Route: 048
  6. CALCIUM GUMMY [Concomitant]
     Indication: SUPPLEMENTATION THERAPY
     Dosage: 2 DOSAGE FORM, QD
     Route: 048
  7. CHOLECALCIFEROL [Concomitant]
     Active Substance: CHOLECALCIFEROL
     Indication: SUPPLEMENTATION THERAPY
     Dosage: 1 DOSAGE FORM, QD
     Route: 048
  8. DILTIAZEM HYDROCHLORIDE. [Suspect]
     Active Substance: DILTIAZEM HYDROCHLORIDE
     Indication: HYPERTENSION
     Dosage: 30 MILLIGRAM, Q.6H
     Route: 065
     Dates: start: 201901
  9. TACROLIMUS. [Interacting]
     Active Substance: TACROLIMUS
     Indication: IMMUNOSUPPRESSION
     Dosage: 1 DOSAGE FORM, Q.AM
     Route: 048
  10. KETOCONAZOLE. [Concomitant]
     Active Substance: KETOCONAZOLE
     Indication: FUNGAL INFECTION
     Dosage: APPLY UNDER BREASTS TO INFECTED
     Route: 065
  11. FIBER [Concomitant]
     Active Substance: PSYLLIUM HUSK
     Indication: SUPPLEMENTATION THERAPY
     Dosage: 3 DOSAGE FORM, QD
     Route: 048
  12. MAGNESIUM GLYCINATE [Concomitant]
     Active Substance: MAGNESIUM GLYCINATE
     Indication: HYPOMAGNESAEMIA
     Dosage: 3 DOSAGE FORM, QD
     Route: 048
  13. BUDESONIDE;FORMOTEROL [Concomitant]
     Active Substance: BUDESONIDE\FORMOTEROL
     Indication: ASTHMA
     Dosage: INHALE TWICE DAILY
  14. FENTANYL. [Concomitant]
     Active Substance: FENTANYL
     Indication: PAIN
     Dosage: 1 PATCH ON SKIN EVERY 72 HOURS
     Route: 062
  15. METOPROLOL TARTRATE. [Concomitant]
     Active Substance: METOPROLOL TARTRATE
     Indication: TACHYCARDIA
     Dosage: 37.5 MILLIGRAM, Q.AM
     Route: 065
  16. SULFAMETHOXAZOLE;TRIMETHOPRIM [Concomitant]
     Active Substance: SULFAMETHOXAZOLE\TRIMETHOPRIM
     Indication: INFECTION PROPHYLAXIS
     Dosage: 1 DOSAGE FORM, T.I.W
     Route: 048
  17. ACETAMINOPHEN. [Concomitant]
     Active Substance: ACETAMINOPHEN
     Indication: PAIN
     Dosage: 2 DOSAGE FORM, Q.6H, AS NEEDED
     Route: 048
  18. GUAIFENESIN. [Concomitant]
     Active Substance: GUAIFENESIN
     Indication: NASAL CONGESTION
  19. DILTIAZEM HYDROCHLORIDE. [Interacting]
     Active Substance: DILTIAZEM HYDROCHLORIDE
     Indication: TACHYCARDIA
     Dosage: 300 MILLIGRAM, QD
     Route: 065
  20. FLUCONAZOLE. [Interacting]
     Active Substance: FLUCONAZOLE
     Indication: CANDIDA OSTEOMYELITIS
     Dosage: 1 DOSAGE FORM, QD
     Route: 048
  21. PREDNISONE. [Concomitant]
     Active Substance: PREDNISONE
     Indication: IMMUNOSUPPRESSION
     Dosage: 1 DOSAGE FORM, QD
     Route: 048
  22. IPRATROPIUM BROMIDE. [Concomitant]
     Active Substance: IPRATROPIUM BROMIDE
     Indication: RHINITIS
     Dosage: 17 MICROGRAM
     Route: 045
  23. IPRATROPIUM BROMIDE. [Concomitant]
     Active Substance: IPRATROPIUM BROMIDE
     Dosage: 2 SPRAYS INTO EACH NOSTRIL BID PRN
     Route: 045
  24. GUAIFENESIN. [Concomitant]
     Active Substance: GUAIFENESIN
     Indication: COUGH
     Dosage: 1 DOSAGE FORM, BID, AS NEEDED
     Route: 048
  25. DILTIAZEM HYDROCHLORIDE. [Interacting]
     Active Substance: DILTIAZEM HYDROCHLORIDE
     Dosage: 240 MILLIGRAM, QD
     Route: 065
  26. AZITHROMYCIN ANHYDROUS. [Concomitant]
     Active Substance: AZITHROMYCIN ANHYDROUS
     Indication: INFECTION PROPHYLAXIS
     Dosage: 1 DOSAGE FORM, QD
     Route: 048
  27. FLUTICASONE. [Concomitant]
     Active Substance: FLUTICASONE
     Indication: RHINITIS ALLERGIC
     Dosage: 2 SPRAYS DAILY
     Route: 045
  28. LIDOCAINE. [Concomitant]
     Active Substance: LIDOCAINE
     Indication: PAIN
     Dosage: 1 PATCH ON SKIN DAILY, DISCARD AFTER
     Route: 062
  29. METOPROLOL TARTRATE. [Concomitant]
     Active Substance: METOPROLOL TARTRATE
     Dosage: 25 MILLIGRAM, Q.H.S.
     Route: 065

REACTIONS (12)
  - Neurotoxicity [Unknown]
  - Tachycardia [Unknown]
  - Bradykinesia [Unknown]
  - Hypokinesia [Unknown]
  - Drug level increased [Unknown]
  - Tremor [Unknown]
  - Drug interaction [Unknown]
  - Drug level fluctuating [Unknown]
  - Asthenia [Unknown]
  - Balance disorder [Unknown]
  - Treatment noncompliance [Unknown]
  - Gait disturbance [Recovered/Resolved]
